FAERS Safety Report 11112360 (Version 3)
Quarter: 2015Q3

REPORT INFORMATION
  Report Type: Report from Study
  Country: US (occurrence: US)
  Receive Date: 20150514
  Receipt Date: 20150827
  Transmission Date: 20151125
  Serious: No
  Sender: FDA-Public Use
  Company Number: US-AMGEN-USASL2015043793

PATIENT
  Age: 43 Year
  Sex: Female

DRUGS (2)
  1. ENBREL [Suspect]
     Active Substance: ETANERCEPT
     Indication: PSORIATIC ARTHROPATHY
     Dosage: 50 MG, QWK
     Route: 065
     Dates: start: 20150427, end: 20150521
  2. HUMIRA [Concomitant]
     Active Substance: ADALIMUMAB

REACTIONS (13)
  - Adverse event [Unknown]
  - Injection site mass [Recovering/Resolving]
  - Eye pruritus [Not Recovered/Not Resolved]
  - Eye swelling [Not Recovered/Not Resolved]
  - Rash macular [Recovering/Resolving]
  - Injection site warmth [Recovering/Resolving]
  - Injection site discolouration [Recovering/Resolving]
  - Injection site reaction [Unknown]
  - Skin plaque [Recovering/Resolving]
  - Psoriasis [Recovering/Resolving]
  - Injection site urticaria [Recovering/Resolving]
  - Injection site pain [Recovering/Resolving]
  - Injection site erythema [Recovering/Resolving]

NARRATIVE: CASE EVENT DATE: 2015
